FAERS Safety Report 5639943-X (Version None)
Quarter: 2008Q1

REPORT INFORMATION
  Report Type: 
  Country: None (occurrence: None)
  Receive Date: 20080227
  Receipt Date: 20080117
  Transmission Date: 20080703
  Serious: Yes (Hospitalization, Other)
  Sender: FDA-Public Use
  Company Number: CH-NOVOPROD-271186

PATIENT
  Age: 15 Year
  Sex: Female
  Weight: 55 kg

DRUGS (3)
  1. NORDITROPIN [Suspect]
     Indication: TURNER'S SYNDROME
     Dosage: .8 MG, QD
     Dates: start: 19980301
  2. NORDITROPIN [Suspect]
     Dosage: 3 MG PER DAY (DAYS 6/7)
     Dates: start: 20070901
  3. PREMARIN [Concomitant]
     Dosage: .3 MG, UNK
     Dates: start: 20060101

REACTIONS (1)
  - THYROID NEOPLASM [None]
